FAERS Safety Report 4853872-0 (Version None)
Quarter: 2005Q4

REPORT INFORMATION
  Report Type: 
  Country: None (occurrence: None)
  Receive Date: 20051213
  Receipt Date: 20051202
  Transmission Date: 20060501
  Serious: Yes (Death, Life-Threatening, Other)
  Sender: FDA-Public Use
  Company Number: KII-2005-0020097

PATIENT
  Age: 40 Year
  Sex: Male
  Weight: 80 kg

DRUGS (3)
  1. MORPHINE SULFATE [Suspect]
     Indication: DRUG USE FOR UNKNOWN INDICATION
  2. PHENCYCLIDINE              (PHENCYCLIDINE) [Suspect]
     Indication: INTENTIONAL DRUG MISUSE
  3. COCAINE        (COCAINE) [Suspect]
     Indication: INTENTIONAL DRUG MISUSE

REACTIONS (12)
  - BLOOD PRESSURE IMMEASURABLE [None]
  - CARDIO-RESPIRATORY ARREST [None]
  - CONVULSION [None]
  - ELECTROCARDIOGRAM P WAVE ABNORMAL [None]
  - HYPERHIDROSIS [None]
  - MALAISE [None]
  - MYDRIASIS [None]
  - NAUSEA [None]
  - POLYSUBSTANCE ABUSE [None]
  - PULSE ABSENT [None]
  - PUPIL FIXED [None]
  - VENTRICULAR FIBRILLATION [None]
